FAERS Safety Report 5110016-8 (Version None)
Quarter: 2006Q3

REPORT INFORMATION
  Report Type: 
  Country: None (occurrence: None)
  Receive Date: 20060921
  Receipt Date: 20060907
  Transmission Date: 20061208
  Serious: Yes (Hospitalization)
  Sender: FDA-Public Use
  Company Number: HQWYE486308SEP06

PATIENT
  Sex: Female
  Weight: 46 kg

DRUGS (4)
  1. ENBREL [Suspect]
     Indication: RHEUMATOID ARTHRITIS
     Route: 058
     Dates: start: 20051122, end: 20060427
  2. PREDNISOLONE [Concomitant]
     Indication: RHEUMATOID ARTHRITIS
  3. VOLTAREN [Concomitant]
     Indication: RHEUMATOID ARTHRITIS
  4. RHEUMATREX [Concomitant]
     Dosage: UNKNOWN
     Dates: start: 20000101

REACTIONS (2)
  - DYSPNOEA [None]
  - ERYTHEMA NODOSUM [None]
